FAERS Safety Report 17748872 (Version 1)
Quarter: 2020Q2

REPORT INFORMATION
  Report Type: Report from Study
  Country: US (occurrence: US)
  Receive Date: 20200506
  Receipt Date: 20200506
  Transmission Date: 20200714
  Serious: Yes (Other)
  Sender: FDA-Public Use
  Company Number: US-ROCHE-2588974

PATIENT
  Age: 50 Year
  Sex: Male
  Weight: 85.35 kg

DRUGS (3)
  1. ACTEMRA [Suspect]
     Active Substance: TOCILIZUMAB
     Indication: COVID-19
     Dosage: 800 MG IV ONCE
     Route: 042
     Dates: start: 20200415
  2. ACTEMRA [Suspect]
     Active Substance: TOCILIZUMAB
     Indication: SYSTEMIC INFLAMMATORY RESPONSE SYNDROME
  3. ACTEMRA [Suspect]
     Active Substance: TOCILIZUMAB
     Indication: ILL-DEFINED DISORDER

REACTIONS (3)
  - Intentional product use issue [Unknown]
  - Off label use [Unknown]
  - Infection [Not Recovered/Not Resolved]

NARRATIVE: CASE EVENT DATE: 20200420
